APPROVED DRUG PRODUCT: OLOPATADINE HYDROCHLORIDE
Active Ingredient: OLOPATADINE HYDROCHLORIDE
Strength: EQ 0.1% BASE
Dosage Form/Route: SOLUTION/DROPS;OPHTHALMIC
Application: A078350 | Product #001
Applicant: APOTEX INC
Approved: Dec 7, 2015 | RLD: No | RS: No | Type: OTC